FAERS Safety Report 11238492 (Version 1)
Quarter: 2015Q3

REPORT INFORMATION
  Report Type: Spontaneous
  Country: CA (occurrence: CA)
  Receive Date: 20150705
  Receipt Date: 20150705
  Transmission Date: 20151125
  Serious: Yes (Hospitalization, Other)
  Sender: FDA-Public Use
  Company Number: CA-TEVA-575618ACC

PATIENT
  Age: 26 Year
  Sex: Male

DRUGS (1)
  1. RISPERIDONE. [Suspect]
     Active Substance: RISPERIDONE
     Indication: SCHIZOPHRENIA
     Dosage: 40 MILLIGRAM DAILY;
     Route: 060

REACTIONS (7)
  - Gait disturbance [Unknown]
  - Sleep disorder [Unknown]
  - Weight increased [Unknown]
  - Malaise [Unknown]
  - Abnormal behaviour [Unknown]
  - Product substitution issue [Unknown]
  - Aggression [Unknown]
